FAERS Safety Report 16067217 (Version 2)
Quarter: 2019Q2

REPORT INFORMATION
  Report Type: Report from Study
  Country: CO (occurrence: CO)
  Receive Date: 20190313
  Receipt Date: 20190604
  Transmission Date: 20190711
  Serious: Yes (Hospitalization, Other)
  Sender: FDA-Public Use
  Company Number: CO-JNJFOC-20190310935

PATIENT
  Age: 36 Year
  Sex: Male
  Weight: 59 kg

DRUGS (2)
  1. REMICADE [Suspect]
     Active Substance: INFLIXIMAB
     Indication: CROHN^S DISEASE
     Route: 042
     Dates: start: 2018, end: 20181201
  2. REMICADE [Suspect]
     Active Substance: INFLIXIMAB
     Indication: CROHN^S DISEASE
     Route: 042
     Dates: start: 2019

REACTIONS (7)
  - Haemoglobin decreased [Recovering/Resolving]
  - Malnutrition [Recovering/Resolving]
  - Escherichia infection [Recovering/Resolving]
  - Hospitalisation [Recovered/Resolved]
  - Off label use [Unknown]
  - Intestinal resection [Unknown]
  - Product use issue [Unknown]

NARRATIVE: CASE EVENT DATE: 201903
